FAERS Safety Report 6691042-4 (Version None)
Quarter: 2010Q2

REPORT INFORMATION
  Report Type: 
  Country: None (occurrence: None)
  Receive Date: 20100421
  Receipt Date: 20100408
  Transmission Date: 20101027
  Serious: Yes (Hospitalization, Other)
  Sender: FDA-Public Use
  Company Number: US-ELI_LILLY_AND_COMPANY-US201004003901

PATIENT
  Sex: Female

DRUGS (7)
  1. CYMBALTA [Suspect]
     Indication: DEPRESSION
     Dosage: 30 MG, DAILY (1/D)
     Dates: start: 20050101, end: 20100301
  2. CYMBALTA [Suspect]
     Dosage: 60 MG, DAILY (1/D)
     Dates: start: 20050101, end: 20100301
  3. KLONOPIN [Concomitant]
  4. VITAMINS NOS [Concomitant]
  5. VICODIN [Concomitant]
  6. NAPROSYN [Concomitant]
  7. EFFEXOR [Concomitant]

REACTIONS (7)
  - ADHESION [None]
  - DRUG WITHDRAWAL SYNDROME [None]
  - HERNIA REPAIR [None]
  - INTESTINAL FUNCTIONAL DISORDER [None]
  - JOINT INJURY [None]
  - POST PROCEDURAL COMPLICATION [None]
  - WEIGHT INCREASED [None]
